FAERS Safety Report 18436531 (Version 2)
Quarter: 2020Q4

REPORT INFORMATION
  Report Type: Report from Study
  Country: US (occurrence: US)
  Receive Date: 20201028
  Receipt Date: 20201102
  Transmission Date: 20210114
  Serious: Yes (Hospitalization)
  Sender: FDA-Public Use
  Company Number: US-BAYER-2020-223022

PATIENT
  Age: 92 Year
  Sex: Male

DRUGS (1)
  1. NEXAVAR [Suspect]
     Active Substance: SORAFENIB
     Indication: HEPATOCELLULAR CARCINOMA
     Dosage: 200 MG, BID
     Route: 048
     Dates: start: 20200916, end: 202010

REACTIONS (14)
  - Fatigue [Unknown]
  - Weight decreased [Unknown]
  - Diarrhoea [Recovering/Resolving]
  - Fall [None]
  - Pneumonia [Unknown]
  - Blood pressure increased [Unknown]
  - Peripheral swelling [Recovering/Resolving]
  - Skin discolouration [Unknown]
  - Headache [Unknown]
  - Dry skin [Unknown]
  - Off label use [None]
  - Sepsis [Unknown]
  - Diarrhoea [Unknown]
  - Asthenia [Recovering/Resolving]
